FAERS Safety Report 7281833-3 (Version None)
Quarter: 2011Q1

REPORT INFORMATION
  Report Type: 
  Country: None (occurrence: None)
  Receive Date: 20110208
  Receipt Date: 20110203
  Transmission Date: 20110831
  Serious: Yes (Other)
  Sender: FDA-Public Use
  Company Number: GB-PFIZER INC-2011025632

PATIENT
  Age: 27 Year
  Sex: Male

DRUGS (5)
  1. EFFEXOR XR [Suspect]
  2. OMEPRAZOLE [Concomitant]
  3. LORAZEPAM [Concomitant]
  4. LAMOTRIGINE [Concomitant]
  5. POTASSIUM [Concomitant]

REACTIONS (4)
  - INTENTIONAL SELF-INJURY [None]
  - INTENTIONAL DRUG MISUSE [None]
  - GASTRIC ULCER [None]
  - HAEMOGLOBIN DECREASED [None]
